FAERS Safety Report 7247171-X (Version None)
Quarter: 2011Q1

REPORT INFORMATION
  Report Type: 
  Country: None (occurrence: None)
  Receive Date: 20110127
  Receipt Date: 20110118
  Transmission Date: 20110831
  Serious: Yes (Other)
  Sender: FDA-Public Use
  Company Number: AU-JNJFOC-20110104833

PATIENT
  Sex: Female

DRUGS (2)
  1. HUMIRA [Suspect]
     Indication: RHEUMATOID ARTHRITIS
  2. INFLIXIMAB, RECOMBINANT [Suspect]
     Indication: RHEUMATOID ARTHRITIS
     Route: 042

REACTIONS (8)
  - SYSTEMIC LUPUS ERYTHEMATOSUS [None]
  - BLOOD PRESSURE INCREASED [None]
  - DENGUE FEVER [None]
  - NAUSEA [None]
  - GUTTATE PSORIASIS [None]
  - VOMITING [None]
  - PHARYNGITIS STREPTOCOCCAL [None]
  - PAIN [None]
